FAERS Safety Report 5603812-1 (Version None)
Quarter: 2008Q1

REPORT INFORMATION
  Report Type: 
  Country: None (occurrence: None)
  Receive Date: 20080124
  Receipt Date: 20080124
  Transmission Date: 20080703
  Serious: Yes (Hospitalization)
  Sender: FDA-Public Use
  Company Number: None

PATIENT
  Sex: Female
  Weight: 78.7 kg

DRUGS (3)
  1. CYCLOPHOSPHAMIDE [Suspect]
     Dosage: 2982 MG
     Dates: end: 20061106
  2. CYTARABINE [Suspect]
     Dosage: 1845 MG
     Dates: end: 20061102
  3. METHOTREXATE [Suspect]
     Dosage: 50 MG
     Dates: end: 20061031

REACTIONS (8)
  - BLOOD DISORDER [None]
  - CANDIDIASIS [None]
  - HEADACHE [None]
  - INFECTION [None]
  - INTRACRANIAL HYPOTENSION [None]
  - LUNG INFECTION [None]
  - NAUSEA [None]
  - VAGINAL HAEMORRHAGE [None]
